FAERS Safety Report 4384296-0 (Version None)
Quarter: 2004Q2

REPORT INFORMATION
  Report Type: 
  Country: None (occurrence: None)
  Receive Date: 20040624
  Receipt Date: 20040614
  Transmission Date: 20050107
  Serious: Yes (Other)
  Sender: FDA-Public Use
  Company Number: US-ROCHE-371165

PATIENT
  Age: 48 Year
  Sex: Female

DRUGS (2)
  1. PEGASYS [Suspect]
     Route: 058
     Dates: start: 20030518
  2. COPEGUS [Suspect]
     Route: 048
     Dates: start: 20030518

REACTIONS (3)
  - INFECTION [None]
  - OVARIAN OPERATION [None]
  - STOMATITIS [None]
